FAERS Safety Report 15120639 (Version 2)
Quarter: 2019Q1

REPORT INFORMATION
  Report Type: Spontaneous
  Country: GB (occurrence: GB)
  Receive Date: 20180709
  Receipt Date: 20190308
  Transmission Date: 20190417
  Serious: Yes (Hospitalization, Other)
  Sender: FDA-Public Use
  Company Number: GB-GILEAD-2018-0348642

PATIENT
  Age: 34 Year
  Sex: Male

DRUGS (6)
  1. GAMMA-BUTYROLACTONE [Concomitant]
     Active Substance: BUTYROLACTONE
     Indication: SUBSTANCE USE
     Dosage: UNK
  2. MCAT [Concomitant]
     Active Substance: MEPHEDRONE
     Indication: SUBSTANCE USE
     Dosage: UNK
     Route: 065
  3. COCAINE [Concomitant]
     Active Substance: COCAINE
     Indication: SUBSTANCE USE
     Dosage: UNK
  4. EMTRICITABINE/TENOFOVIR DF [Suspect]
     Active Substance: EMTRICITABINE
     Indication: PROPHYLAXIS AGAINST HIV INFECTION
     Dosage: 1 DF, QD
     Route: 048
     Dates: start: 20180404
  5. METHYLENEDIOXYMETHAMPHETAMINE [Concomitant]
     Active Substance: MIDOMAFETAMINE
     Indication: SUBSTANCE USE
     Dosage: UNK
  6. METAMFETAMINE [Concomitant]
     Active Substance: METHAMPHETAMINE
     Indication: SUBSTANCE USE
     Dosage: UNK

REACTIONS (2)
  - Methaemoglobinaemia [Recovered/Resolved]
  - Cyanosis [Recovered/Resolved]

NARRATIVE: CASE EVENT DATE: 20180512
